FAERS Safety Report 6429464-9 (Version None)
Quarter: 2009Q4

REPORT INFORMATION
  Report Type: 
  Country: None (occurrence: None)
  Receive Date: 20091105
  Receipt Date: 20090910
  Transmission Date: 20100525
  Serious: No
  Sender: FDA-Public Use
  Company Number: US-ABBOTT-09P-163-0597258-00

PATIENT
  Weight: 54.48 kg

DRUGS (3)
  1. KALETRA [Suspect]
     Indication: HIV INFECTION
     Dosage: UNKNOWN
     Route: 048
     Dates: start: 20000101
  2. ISENTRESS [Concomitant]
     Indication: HIV INFECTION
     Dosage: UNKNOWN
  3. UNKNOWN BIRTH CONTROL [Concomitant]
     Indication: CONTRACEPTION
     Dosage: UNKNOWN

REACTIONS (1)
  - DRUG DOSE OMISSION [None]
